FAERS Safety Report 5609212-2 (Version None)
Quarter: 2008Q1

REPORT INFORMATION
  Report Type: 
  Country: None (occurrence: None)
  Receive Date: 20080130
  Receipt Date: 20080130
  Transmission Date: 20080703
  Serious: Yes (Hospitalization)
  Sender: FDA-Public Use
  Company Number: None

PATIENT
  Sex: Male
  Weight: 68 kg

DRUGS (1)
  1. TEMOZOLOMIDE [Suspect]
     Dosage: 540 MG

REACTIONS (2)
  - DYSPNOEA [None]
  - LOBAR PNEUMONIA [None]
